FAERS Safety Report 18014019 (Version 2)
Quarter: 2020Q3

REPORT INFORMATION
  Report Type: Spontaneous
  Country: US (occurrence: US)
  Receive Date: 20200713
  Receipt Date: 20200730
  Transmission Date: 20201103
  Serious: No
  Sender: FDA-Public Use
  Company Number: US-ASTRAZENECA-2020SE86351

PATIENT
  Age: 78 Year
  Sex: Female
  Weight: 68 kg

DRUGS (19)
  1. FASENRA [Suspect]
     Active Substance: BENRALIZUMAB
     Indication: ASTHMA
     Dosage: 30, UNK, UNKNOWN DOSE, EVERY FOUR WEEKS FOR THREE DOSES AND THEN EVERY EIGHT WEEKS
     Route: 058
     Dates: start: 20200701
  2. BABY ASPIRIN [Concomitant]
     Active Substance: ASPIRIN
     Indication: AGRANULOCYTOSIS
     Dosage: 81 MG 2 TABLETS A DAY
     Route: 048
     Dates: start: 201912
  3. NITROGLYCERIN. [Concomitant]
     Active Substance: NITROGLYCERIN
     Indication: AGRANULOCYTOSIS
     Dosage: 0.4 MG, AS REQUIRED, START DATE MAYBE 2009
     Route: 048
  4. BABY ASPIRIN [Concomitant]
     Active Substance: ASPIRIN
     Indication: AGRANULOCYTOSIS
     Dosage: 81 MG 1 TABLET A DAY
     Route: 048
  5. ATORVASTATIN [Concomitant]
     Active Substance: ATORVASTATIN
     Indication: BLOOD CHOLESTEROL
     Route: 048
  6. MONTELUKAST [Concomitant]
     Active Substance: MONTELUKAST SODIUM
     Indication: HYPERSENSITIVITY
     Route: 048
  7. COZAAR [Concomitant]
     Active Substance: LOSARTAN POTASSIUM
     Indication: BLOOD CHOLESTEROL
     Route: 048
  8. SYMBICORT [Suspect]
     Active Substance: BUDESONIDE\FORMOTEROL FUMARATE DIHYDRATE
     Indication: ASTHMA
     Dosage: 160/4.5 MCG, 2 PUFFS, TWICE DAILY
     Route: 055
  9. PROAIR HFA [Concomitant]
     Active Substance: ALBUTEROL SULFATE
     Indication: DYSPNOEA
     Dosage: AS REQUIRED, UNKNOWN START DATE YEARS AGO
     Route: 055
  10. CALCIUM 600 PLUS VITAMIN D [Concomitant]
     Active Substance: CALCIUM CARBONATE\VITAMIN D
     Indication: BONE DISORDER
     Dosage: TWO TIMES A DAY, START DATE MANY YEARS AGO
     Route: 048
  11. ALBUTEROL NEBULIZER [Concomitant]
     Active Substance: ALBUTEROL
     Indication: DYSPNOEA
     Dosage: AS REQUIRED, UNKNOWN START DATE YEARS AGO
     Route: 055
  12. FASENRA [Suspect]
     Active Substance: BENRALIZUMAB
     Indication: RESPIRATION ABNORMAL
     Dosage: 30, UNK, UNKNOWN DOSE, EVERY FOUR WEEKS FOR THREE DOSES AND THEN EVERY EIGHT WEEKS
     Route: 058
     Dates: start: 20200701
  13. LEVOTHYROXINE. [Concomitant]
     Active Substance: LEVOTHYROXINE
     Indication: THYROID DISORDER
     Dosage: 100 MG DAILY, START DATE 1981 OR 1982
     Route: 048
  14. COZAAR [Concomitant]
     Active Substance: LOSARTAN POTASSIUM
     Indication: BLOOD PRESSURE MEASUREMENT
     Route: 048
  15. MOMETASONE [Concomitant]
     Active Substance: MOMETASONE
     Route: 045
  16. ALBUTEROL HFA [Concomitant]
     Active Substance: ALBUTEROL SULFATE
     Indication: WHEEZING
     Dosage: AS REQUIRED, UNKNOWN START DATE YEARS AGO
     Route: 055
  17. SALINE NASAL RINSE [Concomitant]
     Active Substance: SODIUM CHLORIDE
     Indication: NASAL SEPTAL OPERATION
     Dosage: AS REQUIRED
     Route: 045
  18. AZELASTINE. [Concomitant]
     Active Substance: AZELASTINE HYDROCHLORIDE
     Indication: PRODUCT PRESCRIBING ISSUE
     Dosage: TWO TIMES A DAY
     Route: 045
     Dates: start: 201910
  19. ATORVASTATIN [Concomitant]
     Active Substance: ATORVASTATIN
     Indication: BLOOD PRESSURE MEASUREMENT
     Route: 048

REACTIONS (7)
  - Headache [Recovered/Resolved]
  - Feeling cold [Recovered/Resolved]
  - Pyrexia [Recovered/Resolved]
  - Malaise [Recovered/Resolved]
  - Disturbance in attention [Recovered/Resolved]
  - Oropharyngeal pain [Not Recovered/Not Resolved]
  - Chills [Recovered/Resolved]

NARRATIVE: CASE EVENT DATE: 20200621
